FAERS Safety Report 23430638 (Version 1)
Quarter: 2024Q1

REPORT INFORMATION
  Report Type: Report from Study
  Country: MX (occurrence: MX)
  Receive Date: 20240123
  Receipt Date: 20240123
  Transmission Date: 20240410
  Serious: Yes (Hospitalization)
  Sender: FDA-Public Use
  Company Number: MX-AMGEN-MEXSL2024011138

PATIENT
  Age: 57 Year
  Sex: Female
  Weight: 50 kg

DRUGS (1)
  1. PROLIA [Suspect]
     Active Substance: DENOSUMAB
     Indication: Osteopenia
     Dosage: 60 MILLIGRAM/ 1 ML, Q6MO
     Route: 030

REACTIONS (4)
  - Dental implantation [Unknown]
  - Unevaluable event [Unknown]
  - Incorrect route of product administration [Unknown]
  - Off label use [Unknown]
